FAERS Safety Report 21137345 (Version 1)
Quarter: 2022Q3

REPORT INFORMATION
  Report Type: Spontaneous
  Country: US (occurrence: US)
  Receive Date: 20220727
  Receipt Date: 20220727
  Transmission Date: 20221027
  Serious: Yes (Other)
  Sender: FDA-Public Use
  Company Number: US-PFIZER INC-PV202200030219

PATIENT

DRUGS (2)
  1. GABAPENTIN [Suspect]
     Active Substance: GABAPENTIN
     Indication: Pain
     Dosage: 1800 MG, 1X/DAY
  2. GABAPENTIN [Suspect]
     Active Substance: GABAPENTIN
     Dosage: 2700 MG

REACTIONS (4)
  - Panic attack [Unknown]
  - Impaired driving ability [Unknown]
  - Off label use [Unknown]
  - Accidental overdose [Unknown]
